FAERS Safety Report 8772775 (Version 1)
Quarter: 2012Q4

REPORT INFORMATION
  Report Type: 
  Country: FR (occurrence: FR)
  Receive Date: 20120907
  Receipt Date: 20120907
  Transmission Date: 20130627
  Serious: Yes (Other)
  Sender: FDA-Public Use
  Company Number: FR-PFIZER INC-2012167257

PATIENT
  Age: 55 Year
  Sex: Female
  Weight: 62 kg

DRUGS (4)
  1. XANAX [Suspect]
     Indication: ANXIETY
     Dosage: 0.5 mg daily
  2. XANAX [Suspect]
     Dosage: 2 or 3 tablets, daily
  3. PROZAC [Concomitant]
     Dosage: 20 mg, UNK
  4. ZOLPIDEM [Concomitant]
     Dosage: 10 mg, UNK

REACTIONS (2)
  - Drug dependence [Unknown]
  - Intentional drug misuse [Unknown]
